FAERS Safety Report 14303423 (Version 3)
Quarter: 2018Q2

REPORT INFORMATION
  Report Type: Spontaneous
  Country: US (occurrence: US)
  Receive Date: 20171219
  Receipt Date: 20180628
  Transmission Date: 20180711
  Serious: Yes (Hospitalization, Disabling, Other)
  Sender: FDA-Public Use
  Company Number: US-OTSUKA-2017_007516

PATIENT
  Sex: Male

DRUGS (5)
  1. ABILIFY [Suspect]
     Active Substance: ARIPIPRAZOLE
     Indication: ANXIETY
     Dosage: 5 MG, UNK
     Route: 065
     Dates: start: 2008, end: 2016
  2. ABILIFY [Suspect]
     Active Substance: ARIPIPRAZOLE
     Indication: ATTENTION DEFICIT/HYPERACTIVITY DISORDER
  3. ABILIFY [Suspect]
     Active Substance: ARIPIPRAZOLE
     Indication: DEPRESSION
     Dosage: 2 MG, UNK
     Route: 065
     Dates: start: 2008, end: 2016
  4. ABILIFY [Suspect]
     Active Substance: ARIPIPRAZOLE
     Indication: ADJUVANT THERAPY
  5. ABILIFY [Suspect]
     Active Substance: ARIPIPRAZOLE
     Indication: POST-TRAUMATIC STRESS DISORDER

REACTIONS (21)
  - Suicide attempt [Recovered/Resolved]
  - Condition aggravated [Unknown]
  - Gambling disorder [Recovered/Resolved]
  - Divorced [Unknown]
  - Economic problem [Unknown]
  - Shoplifting [Recovered/Resolved]
  - Pain [Unknown]
  - Psychiatric evaluation [Unknown]
  - Eating disorder [Recovered/Resolved]
  - Disability [Unknown]
  - Skin abrasion [Recovered/Resolved]
  - Product use in unapproved indication [Unknown]
  - Suicidal ideation [Recovered/Resolved]
  - Mental disorder [Unknown]
  - Compulsive sexual behaviour [Recovered/Resolved]
  - Theft [Recovered/Resolved]
  - Trichotillomania [Recovered/Resolved]
  - Compulsive shopping [Recovered/Resolved]
  - Injury [Unknown]
  - Sexual dysfunction [Recovered/Resolved]
  - Anxiety [Unknown]
